FAERS Safety Report 11643614 (Version 1)
Quarter: 2015Q4

REPORT INFORMATION
  Report Type: Spontaneous
  Country: CO (occurrence: CO)
  Receive Date: 20151020
  Receipt Date: 20151020
  Transmission Date: 20160304
  Serious: Yes (Hospitalization)
  Sender: FDA-Public Use
  Company Number: CO-JNJFOC-20151012041

PATIENT
  Age: 39 Year
  Sex: Female
  Weight: 103 kg

DRUGS (1)
  1. INVEGA SUSTENNA [Suspect]
     Active Substance: PALIPERIDONE PALMITATE
     Indication: SCHIZOPHRENIA
     Route: 030
     Dates: start: 20150709

REACTIONS (7)
  - Hypomania [Unknown]
  - Irritability [Unknown]
  - Insomnia [Unknown]
  - Logorrhoea [Unknown]
  - Psychomotor hyperactivity [Unknown]
  - Hostility [Unknown]
  - Aggression [Unknown]

NARRATIVE: CASE EVENT DATE: 20151001
